FAERS Safety Report 10967055 (Version 1)
Quarter: 2015Q1

REPORT INFORMATION
  Report Type: Spontaneous
  Country: US (occurrence: None)
  Receive Date: 20150327
  Receipt Date: 20150327
  Transmission Date: 20150721
  Serious: Yes (Life-Threatening, Hospitalization)
  Sender: FDA-Public Use
  Company Number: None

PATIENT
  Age: 23 Month
  Sex: Male
  Weight: 11.11 kg

DRUGS (4)
  1. ONFI [Suspect]
     Active Substance: CLOBAZAM
     Indication: EPILEPSY
     Route: 048
     Dates: start: 20150302, end: 20150316
  2. KEPPRA [Concomitant]
     Active Substance: LEVETIRACETAM
  3. DIAZEPAM. [Concomitant]
     Active Substance: DIAZEPAM
  4. BACLOFEN. [Concomitant]
     Active Substance: BACLOFEN

REACTIONS (2)
  - Product container issue [None]
  - Seizure [None]

NARRATIVE: CASE EVENT DATE: 20150316
